FAERS Safety Report 10979025 (Version 5)
Quarter: 2015Q3

REPORT INFORMATION
  Report Type: Spontaneous
  Country: US (occurrence: US)
  Receive Date: 20150402
  Receipt Date: 20150806
  Transmission Date: 20151125
  Serious: Yes (Other)
  Sender: FDA-Public Use
  Company Number: US-PFIZER INC-2015112134

PATIENT
  Age: 83 Year
  Sex: Female
  Weight: 53 kg

DRUGS (14)
  1. PANTOPRAZOLE [Concomitant]
     Active Substance: PANTOPRAZOLE SODIUM
     Indication: GASTROOESOPHAGEAL REFLUX DISEASE
     Dosage: 40 MG, 1X/DAY
     Route: 048
  2. BAYER ASPIRIN [Concomitant]
     Active Substance: ASPIRIN
     Indication: CARDIAC DISORDER
     Dosage: 81 MG, DAILY
     Route: 048
  3. LEVOTHYROXINE. [Concomitant]
     Active Substance: LEVOTHYROXINE
     Indication: THYROID DISORDER
     Dosage: 50 ?G, DAILY
     Route: 048
  4. TYLENOL EXTRA STRENGTH [Concomitant]
     Active Substance: ACETAMINOPHEN
     Indication: PAIN
     Dosage: 500 MG, 6X/DAY
     Route: 048
  5. MAGNESIUM [Concomitant]
     Active Substance: MAGNESIUM
     Indication: BONE DISORDER
     Dosage: 400 MG, 4X/DAY
     Route: 048
  6. LABETALOL [Concomitant]
     Active Substance: LABETALOL\LABETALOL HYDROCHLORIDE
     Indication: BLOOD PRESSURE ABNORMAL
     Dosage: 300 MG, 2X/DAY
     Route: 048
  7. GAS X PREVENTION [Concomitant]
     Indication: FLATULENCE
     Dosage: 125 MG, 4X/DAY
     Route: 048
  8. LEUCOVORIN. [Concomitant]
     Active Substance: LEUCOVORIN
     Indication: PROPHYLAXIS
     Dosage: 5 MG, DAILY
     Route: 048
  9. MAGNESIUM [Concomitant]
     Active Substance: MAGNESIUM
     Indication: ROUTINE HEALTH MAINTENANCE
  10. METHOTREXATE [Concomitant]
     Active Substance: METHOTREXATE
     Indication: RHEUMATOID ARTHRITIS
     Dosage: 15 MG, WEEKLY
     Route: 048
  11. COLESTIPOL [Concomitant]
     Active Substance: COLESTIPOL
     Indication: DIARRHOEA
     Dosage: 1G TABLET SIX TABLETS A DAY
     Route: 048
  12. MULTIVITAMINS [Concomitant]
     Active Substance: VITAMINS
     Dosage: UNK
     Route: 048
  13. CITRACAL + D [Concomitant]
     Active Substance: CALCIUM CITRATE\VITAMIN D
     Dosage: COUPLE OF TIMES A DAY
     Route: 048
  14. XELJANZ [Suspect]
     Active Substance: TOFACITINIB CITRATE
     Indication: RHEUMATOID ARTHRITIS
     Dosage: 5 MG, 2X/DAY
     Route: 048
     Dates: start: 20150220, end: 20150429

REACTIONS (7)
  - Weight decreased [Recovered/Resolved]
  - Lower respiratory tract infection [Recovered/Resolved]
  - Asthenia [Recovered/Resolved]
  - Palpitations [Recovered/Resolved]
  - Feeling jittery [Recovered/Resolved]
  - Blood cholesterol increased [Recovered/Resolved]
  - Blood triglycerides increased [Recovered/Resolved]

NARRATIVE: CASE EVENT DATE: 201502
